FAERS Safety Report 9914966 (Version 2)
Quarter: 2014Q1

REPORT INFORMATION
  Report Type: Spontaneous
  Country: DE (occurrence: DE)
  Receive Date: 20140220
  Receipt Date: 20140227
  Transmission Date: 20141002
  Serious: Yes (Disabling, Other)
  Sender: FDA-Public Use
  Company Number: DE-GILEAD-2014-0094938

PATIENT
  Age: 71 Year
  Sex: Female
  Weight: 76 kg

DRUGS (3)
  1. RANOLAZINE [Suspect]
     Indication: MYOCARDIAL ISCHAEMIA
     Dosage: 375 MG, QD
     Route: 048
     Dates: start: 20131206, end: 20140116
  2. CANDESARTAN [Suspect]
     Indication: HYPERTENSION
     Dosage: 4 MG, UNK
     Route: 065
     Dates: start: 20131029, end: 201401
  3. XARELTO [Concomitant]
     Indication: ATRIAL FIBRILLATION
     Dosage: 20 MG, UNK
     Dates: start: 20131029

REACTIONS (2)
  - Polyneuropathy [Recovering/Resolving]
  - Paraesthesia oral [Recovering/Resolving]
